FAERS Safety Report 12691447 (Version 1)
Quarter: 2016Q3

REPORT INFORMATION
  Report Type: Spontaneous
  Country: BE (occurrence: BE)
  Receive Date: 20160826
  Receipt Date: 20160826
  Transmission Date: 20161109
  Serious: Yes (Death, Other)
  Sender: FDA-Public Use
  Company Number: BE-MYLANLABS-2016M1035916

PATIENT

DRUGS (8)
  1. PHENOBARBITAL. [Concomitant]
     Active Substance: PHENOBARBITAL
     Route: 065
  2. GANCICLOVIR. [Suspect]
     Active Substance: GANCICLOVIR
     Indication: CYTOMEGALOVIRUS INFECTION
     Dosage: 4 WEEKS LATER DOSE FREQUENCY REDUCED TO ONCE DAILY
     Route: 065
  3. GANCICLOVIR. [Suspect]
     Active Substance: GANCICLOVIR
     Dosage: 1 WEEKS LATER DOSE FREQUENCY CHANGED AGAIN TO TWICE DAILY (DOUBLE DOSE ACCORDING TO BODY WEIGHT)
     Route: 065
  4. FLUDARABINE [Concomitant]
     Active Substance: FLUDARABINE PHOSPHATE
     Dosage: 4X35 MG/M2
     Route: 065
  5. FOSCARNET [Suspect]
     Active Substance: FOSCARNET
     Indication: CYTOMEGALOVIRUS INFECTION
     Dosage: FOR MORE THAN 2 WEEKS
     Route: 065
  6. CIDOFOVIR. [Suspect]
     Active Substance: CIDOFOVIR
     Indication: CYTOMEGALOVIRUS INFECTION
     Route: 065
  7. GANCICLOVIR. [Suspect]
     Active Substance: GANCICLOVIR
     Dosage: 1 WEEKS LATER DOSE FREQUENCY CHANGED AGAIN TO TWICE DAILY
     Route: 065
  8. BUSULFAN. [Concomitant]
     Active Substance: BUSULFAN
     Dosage: 16X1MG/KG
     Route: 042

REACTIONS (4)
  - Cardiac arrest [Fatal]
  - Multiple-drug resistance [Unknown]
  - Encephalitis cytomegalovirus [Unknown]
  - Respiratory arrest [Fatal]
